FAERS Safety Report 5211279-0 (Version None)
Quarter: 2006Q4

REPORT INFORMATION
  Report Type: 
  Country: None (occurrence: None)
  Receive Date: 20061114
  Receipt Date: 20060929
  Transmission Date: 20070319
  Serious: No
  Sender: FDA-Public Use
  Company Number: S06-USA-04010-01

PATIENT
  Age: 87 Year
  Sex: Female

DRUGS (9)
  1. NAMENDA [Suspect]
     Indication: DEMENTIA
     Dosage: 5 MG BID PO
     Route: 048
     Dates: start: 20060911
  2. SEROQUEL [Suspect]
     Indication: DRUG USE FOR UNKNOWN INDICATION
  3. ATENOLOL [Concomitant]
  4. CALCIUM [Concomitant]
  5. SENNA [Concomitant]
  6. LEVOTHYROXINE SODIUM [Concomitant]
  7. CRANBERRY TABLETS [Concomitant]
  8. RANITIDINE [Concomitant]
  9. CELEBREX [Concomitant]

REACTIONS (1)
  - CONFUSIONAL STATE [None]
